FAERS Safety Report 21459245 (Version 3)
Quarter: 2023Q2

REPORT INFORMATION
  Report Type: Report from Study
  Country: EG (occurrence: EG)
  Receive Date: 20221014
  Receipt Date: 20230510
  Transmission Date: 20230722
  Serious: Yes (Hospitalization, Other)
  Sender: FDA-Public Use
  Company Number: EG-NOVARTISPH-NVSC2022EG230752

PATIENT
  Sex: Female

DRUGS (5)
  1. COSENTYX [Suspect]
     Active Substance: SECUKINUMAB
     Indication: Psoriasis
     Dosage: 150 MG, QMO (FOR A DURATION OF 4 MONTHS)
     Route: 065
     Dates: start: 20220901
  2. COSENTYX [Suspect]
     Active Substance: SECUKINUMAB
     Indication: Rheumatic disorder
     Dosage: 150 MG, QMO (FOR A DURATION OF 4 MONTHS)
     Route: 065
     Dates: start: 202209, end: 202212
  3. ERASTAPEX [Concomitant]
     Indication: Hypertension
     Dosage: UNK, QD (TRIO 12.5/5/20)
     Route: 048
     Dates: start: 2020
  4. ERASTAPEX [Concomitant]
     Dosage: UNK, QD (TRIO 12.5 MG/20 MG), 15 YEARS AGO
     Route: 048
     Dates: end: 202212
  5. LEFLUNOMIDE [Concomitant]
     Active Substance: LEFLUNOMIDE
     Indication: Psoriatic arthropathy
     Dosage: UNK, QD
     Route: 048
     Dates: start: 202207

REACTIONS (18)
  - Coronavirus infection [Recovered/Resolved]
  - Body temperature increased [Recovered/Resolved]
  - Hypotension [Not Recovered/Not Resolved]
  - Fatigue [Not Recovered/Not Resolved]
  - Piloerection [Not Recovered/Not Resolved]
  - Dizziness [Not Recovered/Not Resolved]
  - Pharyngeal disorder [Not Recovered/Not Resolved]
  - Dysphagia [Not Recovered/Not Resolved]
  - Blood triglycerides increased [Recovered/Resolved]
  - Blood cholesterol increased [Recovered/Resolved]
  - Vitamin D decreased [Not Recovered/Not Resolved]
  - Blood urea increased [Recovered/Resolved]
  - Decreased immune responsiveness [Not Recovered/Not Resolved]
  - Mobility decreased [Recovered/Resolved]
  - Lung disorder [Recovered/Resolved]
  - Hypersomnia [Recovered/Resolved]
  - Nausea [Not Recovered/Not Resolved]
  - Inappropriate schedule of product administration [Not Recovered/Not Resolved]

NARRATIVE: CASE EVENT DATE: 20220101
